FAERS Safety Report 9660710 (Version 1)
Quarter: 2013Q4

REPORT INFORMATION
  Report Type: Spontaneous
  Country: US (occurrence: US)
  Receive Date: 20131031
  Receipt Date: 20131031
  Transmission Date: 20140711
  Serious: No
  Sender: FDA-Public Use
  Company Number: US-ENDO PHARMACEUTICALS INC.-HCDA20120093

PATIENT
  Age: 60 Year
  Sex: Female

DRUGS (2)
  1. HYDROCODONE/ACETAMINOPHEN 10MG/325MG [Suspect]
     Indication: RENAL PAIN
     Route: 048
  2. HYDROCODONE/ACETAMINOPHEN 10MG/325MG [Suspect]
     Indication: BLADDER SPASM

REACTIONS (3)
  - Chest pain [Unknown]
  - Migraine [Unknown]
  - Acne [Unknown]
